FAERS Safety Report 25839399 (Version 1)
Quarter: 2025Q3

REPORT INFORMATION
  Report Type: Report from Study
  Country: AR (occurrence: AR)
  Receive Date: 20250924
  Receipt Date: 20250924
  Transmission Date: 20251020
  Serious: Yes (Other)
  Sender: ROCHE
  Company Number: AR-ROCHE-10000391753

PATIENT
  Age: 80 Year
  Sex: Male

DRUGS (4)
  1. VABYSMO [Suspect]
     Active Substance: FARICIMAB-SVOA
     Indication: Neovascular age-related macular degeneration
     Route: 050
  2. ENALAPRIL [Concomitant]
     Active Substance: ENALAPRIL
     Indication: Hypertension
     Route: 048
     Dates: start: 2022
  3. CLOPIDOGREL [Concomitant]
     Active Substance: CLOPIDOGREL BISULFATE
     Indication: Hypertension
     Route: 048
     Dates: start: 2022
  4. GATIFLOXACIN [Concomitant]
     Active Substance: GATIFLOXACIN
     Indication: Conjunctivitis
     Route: 047
     Dates: start: 20250507

REACTIONS (1)
  - Blepharitis [Recovered/Resolved]

NARRATIVE: CASE EVENT DATE: 20250901
